FAERS Safety Report 10306180 (Version 1)
Quarter: 2014Q3

REPORT INFORMATION
  Report Type: Spontaneous
  Country: FR (occurrence: FR)
  Receive Date: 20140715
  Receipt Date: 20140715
  Transmission Date: 20150326
  Serious: Yes (Hospitalization)
  Sender: FDA-Public Use
  Company Number: FR-BRISTOL-MYERS SQUIBB COMPANY-21175369

PATIENT
  Age: 44 Year
  Sex: Male

DRUGS (1)
  1. COUMADIN [Suspect]
     Active Substance: WARFARIN SODIUM
     Indication: PORTAL VEIN THROMBOSIS
     Route: 048
     Dates: start: 201303, end: 201307

REACTIONS (3)
  - Renal failure acute [Unknown]
  - Haematuria [Recovered/Resolved]
  - Renal tubular disorder [Unknown]

NARRATIVE: CASE EVENT DATE: 20130624
